FAERS Safety Report 25379029 (Version 1)
Quarter: 2025Q2

REPORT INFORMATION
  Report Type: Report from Study
  Country: GB (occurrence: GB)
  Receive Date: 20250530
  Receipt Date: 20250530
  Transmission Date: 20250717
  Serious: Yes (Other)
  Sender: MYLAN
  Company Number: GB-MYLANLABS-2025M1044769

PATIENT
  Age: 40 Year

DRUGS (1)
  1. TRANEXAMIC ACID [Suspect]
     Active Substance: TRANEXAMIC ACID
     Indication: Vomiting
     Dosage: 1000 MILLIGRAM, QD (CONTINUOUS SC INFUSION)

REACTIONS (1)
  - Drug ineffective [Unknown]
